FAERS Safety Report 5905968-X (Version None)
Quarter: 2008Q4

REPORT INFORMATION
  Report Type: 
  Country: None (occurrence: None)
  Receive Date: 20081002
  Receipt Date: 20080926
  Transmission Date: 20090506
  Serious: Yes (Hospitalization, Other)
  Sender: FDA-Public Use
  Company Number: JP-MERCK-0807USA00712

PATIENT
  Age: 30 Year
  Sex: Female
  Weight: 99 kg

DRUGS (9)
  1. DECADRON SRC [Suspect]
     Indication: 21-HYDROXYLASE DEFICIENCY
     Route: 048
  2. DECADRON SRC [Suspect]
     Route: 048
  3. DECADRON SRC [Suspect]
     Route: 048
     Dates: start: 20070101, end: 20080101
  4. DECADRON SRC [Suspect]
     Route: 048
     Dates: start: 19970101, end: 19990101
  5. DECADRON SRC [Suspect]
     Route: 048
  6. DECADRON SRC [Suspect]
     Route: 048
     Dates: start: 19990101, end: 20060101
  7. DECADRON SRC [Suspect]
     Route: 048
  8. DECADRON SRC [Suspect]
     Route: 048
  9. PREDONINE [Suspect]
     Indication: 21-HYDROXYLASE DEFICIENCY
     Route: 048
     Dates: start: 20060101, end: 20070101

REACTIONS (5)
  - CUSHING'S SYNDROME [None]
  - DIABETES MELLITUS [None]
  - INCREASED APPETITE [None]
  - OBESITY [None]
  - OVERDOSE [None]
